FAERS Safety Report 12894351 (Version 4)
Quarter: 2016Q4

REPORT INFORMATION
  Report Type: Spontaneous
  Country: CA (occurrence: CA)
  Receive Date: 20161028
  Receipt Date: 20161216
  Transmission Date: 20170207
  Serious: Yes (Other)
  Sender: FDA-Public Use
  Company Number: CA-PFIZER INC-2016154529

PATIENT
  Age: 53 Year
  Sex: Male

DRUGS (12)
  1. ENBREL [Suspect]
     Active Substance: ETANERCEPT
     Dosage: 50 MG, ONCE WEEKLY
     Route: 058
     Dates: start: 20151102, end: 20160309
  2. QUINAPRIL. [Concomitant]
     Active Substance: QUINAPRIL
     Dosage: 40 MG, 1X/DAY
     Dates: start: 2012
  3. SULFASALAZINE. [Suspect]
     Active Substance: SULFASALAZINE
     Indication: RHEUMATOID ARTHRITIS
     Dosage: 1 G, 2X/DAY
     Route: 048
     Dates: start: 20150601, end: 20150716
  4. LEUCOVORIN /00566701/ [Suspect]
     Active Substance: LEUCOVORIN
     Dosage: 5 MG, UNK
     Route: 048
     Dates: start: 201503
  5. METHOTREXATE SODIUM. [Suspect]
     Active Substance: METHOTREXATE SODIUM
     Dosage: 15 MG, ONCE WEEKLY
     Route: 048
     Dates: start: 20150601
  6. ENBREL [Suspect]
     Active Substance: ETANERCEPT
     Indication: RHEUMATOID ARTHRITIS
     Dosage: UNK
     Dates: start: 201509, end: 201601
  7. METHOTREXATE SODIUM. [Suspect]
     Active Substance: METHOTREXATE SODIUM
     Indication: RHEUMATOID ARTHRITIS
     Dosage: 2.5 MG, WEEKLY
     Route: 048
     Dates: start: 201503
  8. LEFLUNOMIDE. [Suspect]
     Active Substance: LEFLUNOMIDE
     Dosage: 25 MG, 1X/DAY
     Route: 048
     Dates: start: 20150916, end: 20151006
  9. HYDROXYCHLOROQUINE [Suspect]
     Active Substance: HYDROXYCHLOROQUINE
     Dosage: 400 MG, 1X/DAY
     Route: 065
     Dates: start: 20150601, end: 20151006
  10. ROSUVASTATIN. [Concomitant]
     Active Substance: ROSUVASTATIN
     Dosage: 20 MG, 1X/DAY
     Dates: start: 2012
  11. HYDROCHLOROTHIAZIDE. [Concomitant]
     Active Substance: HYDROCHLOROTHIAZIDE
     Dosage: 5 MG, 1X/DAY
     Dates: start: 2014
  12. OXYCODONE [Concomitant]
     Active Substance: OXYCODONE
     Indication: PAIN
     Dosage: 3.25-5 MG (6-8 PILLS A DAY) AS NEEDED
     Route: 048

REACTIONS (7)
  - Dyspepsia [Unknown]
  - Asthenia [Unknown]
  - Gastrointestinal disorder [Unknown]
  - Grip strength decreased [Unknown]
  - Diarrhoea [Unknown]
  - Drug ineffective [Unknown]
  - Nausea [Unknown]
